FAERS Safety Report 23198106 (Version 1)
Quarter: 2023Q4

REPORT INFORMATION
  Report Type: Report from Study
  Country: CA (occurrence: None)
  Receive Date: 20231117
  Receipt Date: 20231117
  Transmission Date: 20240110
  Serious: Yes (Death, Other)
  Sender: FDA-Public Use
  Company Number: 2023A261550

PATIENT
  Sex: Male

DRUGS (1)
  1. TEZSPIRE [Suspect]
     Active Substance: TEZEPELUMAB-EKKO
     Indication: Asthma
     Dosage: 210.0MG UNKNOWN
     Route: 058
     Dates: start: 20230323

REACTIONS (1)
  - Death [Fatal]
